FAERS Safety Report 8531410-9 (Version None)
Quarter: 2012Q3

REPORT INFORMATION
  Report Type: 
  Country: None (occurrence: None)
  Receive Date: 20120723
  Receipt Date: 20120712
  Transmission Date: 20120928
  Serious: Yes (Hospitalization)
  Sender: FDA-Public Use
  Company Number: JP-VERTEX PHARMACEUTICALS INC.-AE-2012-003193

PATIENT
  Age: 68 Year
  Sex: Female

DRUGS (14)
  1. ALLEGRA [Concomitant]
     Route: 048
     Dates: start: 20120116, end: 20120513
  2. TELAVIC (TELAPREVIR) [Suspect]
     Indication: HEPATITIS C
     Route: 048
     Dates: start: 20120116, end: 20120223
  3. REBETOL [Concomitant]
     Route: 048
     Dates: start: 20120310, end: 20120415
  4. REBETOL [Concomitant]
     Route: 048
     Dates: start: 20120416, end: 20120422
  5. REBETOL [Concomitant]
     Route: 048
     Dates: start: 20120423, end: 20120513
  6. REBETOL [Concomitant]
     Indication: HEPATITIS C
     Route: 048
     Dates: start: 20120116, end: 20120226
  7. REBETOL [Concomitant]
     Route: 048
     Dates: start: 20120227, end: 20120308
  8. PEG-INTRON [Concomitant]
     Indication: HEPATITIS C
     Route: 058
     Dates: start: 20120116, end: 20120507
  9. TELAVIC (TELAPREVIR) [Suspect]
     Route: 048
     Dates: start: 20120224, end: 20120409
  10. REBETOL [Concomitant]
     Route: 048
     Dates: start: 20120309, end: 20120414
  11. TRICHLORMETHIAZIDE [Concomitant]
     Route: 048
     Dates: start: 20120116
  12. CARVEDILOL [Concomitant]
     Route: 048
     Dates: start: 20120116
  13. RIKKUNSHI-TO [Concomitant]
     Route: 048
     Dates: start: 20120116, end: 20120513
  14. DIOVAN [Concomitant]
     Route: 048
     Dates: start: 20120116

REACTIONS (4)
  - BLOOD URIC ACID INCREASED [None]
  - BLOOD CREATININE INCREASED [None]
  - NAUSEA [None]
  - BRAIN ABSCESS [None]
